FAERS Safety Report 10308127 (Version 1)
Quarter: 2014Q3

REPORT INFORMATION
  Report Type: Spontaneous
  Country: TR (occurrence: None)
  Receive Date: 20140711
  Receipt Date: 20140711
  Transmission Date: 20150326
  Serious: Yes (Hospitalization)
  Sender: FDA-Public Use
  Company Number: IMP_07718_2014

PATIENT
  Age: 17 Month
  Sex: Male

DRUGS (2)
  1. VALPROATE [Suspect]
     Active Substance: VALPROATE SODIUM
     Indication: PRODUCT USED FOR UNKNOWN INDICATION
     Dosage: 50 MG/KG/DAY
     Route: 048
  2. PHENOBARBITAL (PHENOBARBITAL) [Suspect]
     Active Substance: PHENOBARBITAL
     Indication: PRODUCT USED FOR UNKNOWN INDICATION
     Dosage: 5 MG/KG/DAY

REACTIONS (6)
  - Convulsion [None]
  - Amino acid level increased [None]
  - Hyperammonaemia [None]
  - Respiratory depression [None]
  - Infantile spasms [None]
  - Confusional state [None]
